FAERS Safety Report 9297834 (Version 4)
Quarter: 2013Q3

REPORT INFORMATION
  Report Type: Spontaneous
  Country: US (occurrence: None)
  Receive Date: 20130515
  Receipt Date: 20130916
  Transmission Date: 20140515
  Serious: Yes (Other)
  Sender: FDA-Public Use
  Company Number: JPI-P-031622

PATIENT
  Age: 15 Year
  Sex: Female
  Weight: 84.82 kg

DRUGS (2)
  1. XYREM [Suspect]
     Indication: CATAPLEXY
     Dosage: 4.5 GM (2.25 GM, 2 IN 1 D)
     Route: 048
     Dates: start: 20090202
  2. METHYLPHENIDATE [Concomitant]

REACTIONS (7)
  - Chest pain [None]
  - Sleep apnoea syndrome [None]
  - Weight loss poor [None]
  - Arrhythmia [None]
  - Tremor [None]
  - Ventricular extrasystoles [None]
  - Ventricular extrasystoles [None]
